FAERS Safety Report 24019313 (Version 1)
Quarter: 2024Q2

REPORT INFORMATION
  Report Type: Spontaneous
  Country: ES (occurrence: ES)
  Receive Date: 20240627
  Receipt Date: 20240627
  Transmission Date: 20240716
  Serious: Yes (Other)
  Sender: FDA-Public Use
  Company Number: ES-ROCHE-10000001688

PATIENT
  Age: 61 Year
  Sex: Male
  Weight: 90.7 kg

DRUGS (19)
  1. CARBOPLATIN [Suspect]
     Active Substance: CARBOPLATIN
     Indication: Non-small cell lung cancer
     Dosage: 683 MG, EVERY 3 WEEKS
     Route: 042
     Dates: start: 20210820
  2. ATEZOLIZUMAB [Suspect]
     Active Substance: ATEZOLIZUMAB
     Indication: Non-small cell lung cancer
     Dosage: 200 ML, EVERY 3 WEEKS
     Route: 042
     Dates: start: 20210820
  3. PEMBROLIZUMAB [Suspect]
     Active Substance: PEMBROLIZUMAB
     Indication: Non-small cell lung cancer
     Dosage: 200 ML, EVERY 3 WEEKS; TOTAL VOLUME PRIOR AE IS 200 ML
  4. TIRAGOLUMAB [Suspect]
     Active Substance: TIRAGOLUMAB
     Indication: Non-small cell lung cancer
     Dosage: START DATE OF MOST RECENT DOSE OF STUDY DRUG - 27-APR-2022
     Route: 042
     Dates: start: 20210820
  5. ALLANTOIN [Concomitant]
     Active Substance: ALLANTOIN
     Indication: Keratopathy
     Dosage: 1 DROP, 1X/DAY
     Route: 047
     Dates: start: 20220217
  6. SODIUM HYALURONATE [Concomitant]
     Active Substance: HYALURONATE SODIUM
     Indication: Keratopathy
     Dosage: 1 DROP; FREQ:.33 D;
     Route: 047
     Dates: start: 20220217
  7. DEXAMETHASONE [Concomitant]
     Active Substance: DEXAMETHASONE
     Indication: Premedication
     Dosage: 8 MG; GIVEN FOR PROPHYLAXIS IS YES
     Route: 048
     Dates: start: 20210819
  8. DEXAMETHASONE [Concomitant]
     Active Substance: DEXAMETHASONE
     Dosage: 8 MG, EVERY 3 WEEKS
     Route: 048
     Dates: start: 20210820
  9. DEXAMETHASONE [Concomitant]
     Active Substance: DEXAMETHASONE
     Dosage: 8 MG, 1X/DAY
     Route: 048
     Dates: start: 20210821
  10. POLYETHYLENE GLYCOLS [Concomitant]
     Active Substance: POLYETHYLENE GLYCOLS
     Indication: Constipation
     Dosage: UNK UNK, AS NEEDED; DRUG DOSE FIRST ADMINISTERED IS 1 UNKNOWNGIVEN FOR PROPHYLAXIS IS YES
     Route: 048
     Dates: start: 20210907
  11. METOCLOPRAMIDE [Concomitant]
     Active Substance: METOCLOPRAMIDE
     Indication: Vomiting
     Dosage: UNK UNK, AS NEEDED; GIVEN FOR PROPHYLAXIS IS YES
     Route: 048
     Dates: start: 20210907
  12. PEMETREXED [Concomitant]
     Active Substance: PEMETREXED
     Indication: Non-small cell lung cancer
     Dosage: 974 MG, EVERY 3 WEEKS
     Route: 042
     Dates: start: 20210820
  13. SPIRONOLACTONE [Concomitant]
     Active Substance: SPIRONOLACTONE
     Indication: Oedema peripheral
     Dosage: 50 MG, 1X/DAY
     Route: 048
     Dates: start: 20220513, end: 20220517
  14. TIOTROPIUM [Concomitant]
     Active Substance: TIOTROPIUM
     Indication: Dyspnoea
     Dosage: UNK UNK, AS NEEDED; DRUG DOSE FIRST ADMINISTERED IS 1 INHALATIONGIVEN FOR PROPHYLAXIS IS YES
     Route: 055
     Dates: start: 20210907
  15. FOLIC ACID [Concomitant]
     Active Substance: FOLIC ACID
     Indication: Prophylaxis
     Dosage: 5 MG, 1X/DAY; GIVEN FOR PROPHYLAXIS IS YES
     Route: 048
     Dates: start: 20210907
  16. CODEINE [Concomitant]
     Active Substance: CODEINE
     Indication: Cough
     Dosage: UNK UNK, AS NEEDED; DRUG DOSE FIRST ADMINISTERED IS 1 TBSPGIVEN FOR PROPHYLAXIS IS YES
     Route: 048
     Dates: start: 20210811
  17. FUROSEMIDE [Concomitant]
     Active Substance: FUROSEMIDE
     Indication: Oedema peripheral
     Dosage: 40 MG, 1X/DAY
     Route: 048
     Dates: start: 20220420, end: 20220517
  18. ENALAPRIL [Concomitant]
     Active Substance: ENALAPRIL
     Indication: Hypertension
     Dosage: 10 MG, 1X/DAY
     Route: 048
     Dates: start: 20210803, end: 20220423
  19. DIAZEPAM [Concomitant]
     Active Substance: DIAZEPAM
     Indication: Prophylaxis
     Dosage: 5 MG, 1X/DAY; 5 MG, 1X/DAY; GIVEN FOR PROPHYLAXIS IS YES
     Route: 048
     Dates: start: 202107, end: 20220819

REACTIONS (2)
  - Immune-mediated adrenal insufficiency [Recovered/Resolved]
  - Off label use [Unknown]

NARRATIVE: CASE EVENT DATE: 20210820
